FAERS Safety Report 24754810 (Version 1)
Quarter: 2024Q4

REPORT INFORMATION
  Report Type: Spontaneous
  Country: US (occurrence: None)
  Receive Date: 20241219
  Receipt Date: 20241219
  Transmission Date: 20250115
  Serious: Yes (Other)
  Sender: Public
  Company Number: None

PATIENT
  Age: 13 Year
  Sex: Female
  Weight: 63 kg

DRUGS (4)
  1. MONTELUKAST [Suspect]
     Active Substance: MONTELUKAST SODIUM
     Indication: Asthma
  2. FLOVENT [Concomitant]
     Active Substance: FLUTICASONE PROPIONATE
  3. ALBUTEROL [Concomitant]
     Active Substance: ALBUTEROL
  4. ZYRTEC [Concomitant]
     Active Substance: CETIRIZINE HYDROCHLORIDE

REACTIONS (9)
  - Crying [None]
  - Emotional distress [None]
  - Depressed mood [None]
  - Morbid thoughts [None]
  - Illness [None]
  - Oropharyngeal pain [None]
  - Pyrexia [None]
  - Hyperhidrosis [None]
  - Nausea [None]

NARRATIVE: CASE EVENT DATE: 20241216
